FAERS Safety Report 9164511 (Version 1)
Quarter: 2013Q1

REPORT INFORMATION
  Report Type: Spontaneous
  Country: DE (occurrence: None)
  Receive Date: 20130226
  Receipt Date: 20130226
  Transmission Date: 20140127
  Serious: Yes (Other)
  Sender: FDA-Public Use
  Company Number: 1609264

PATIENT
  Age: 93 Year
  Sex: Female
  Weight: 53 kg

DRUGS (2)
  1. OXALIPLATIN [Suspect]
     Indication: NON-HODGKIN^S LYMPHOMA
  2. GEMCITABINE [Concomitant]

REACTIONS (4)
  - Rhonchi [None]
  - Bronchospasm [None]
  - Dyspnoea [None]
  - Rash [None]
